FAERS Safety Report 13940897 (Version 1)
Quarter: 2017Q3

REPORT INFORMATION
  Report Type: Spontaneous
  Country: CL (occurrence: CL)
  Receive Date: 20170906
  Receipt Date: 20170906
  Transmission Date: 20171127
  Serious: Yes (Death)
  Sender: FDA-Public Use
  Company Number: CL-BAUSCH-BL-2017-026124

PATIENT
  Sex: Female
  Weight: 63 kg

DRUGS (2)
  1. NORMIX COMPRIMIDOS RECUBIERDOS 200 MG [Suspect]
     Active Substance: RIFAXIMIN
     Indication: HYPERAMMONAEMIA
     Route: 048
     Dates: start: 201707
  2. PREDNISONE. [Concomitant]
     Active Substance: PREDNISONE
     Indication: PRODUCT USED FOR UNKNOWN INDICATION

REACTIONS (2)
  - Hepatic failure [Fatal]
  - Autoimmune hepatitis [Fatal]
